FAERS Safety Report 20096921 (Version 2)
Quarter: 2021Q4

REPORT INFORMATION
  Report Type: Spontaneous
  Country: FR (occurrence: FR)
  Receive Date: 20211122
  Receipt Date: 20211129
  Transmission Date: 20220303
  Serious: Yes (Other)
  Sender: FDA-Public Use
  Company Number: None

PATIENT
  Age: 57 Year
  Sex: Female
  Weight: 42 kg

DRUGS (10)
  1. ERBITUX [Suspect]
     Active Substance: CETUXIMAB
     Indication: Oropharyngeal squamous cell carcinoma
     Dosage: 372 MG, UNK
     Route: 041
     Dates: start: 20210616, end: 20210616
  2. CARBOPLATIN [Suspect]
     Active Substance: CARBOPLATIN
     Indication: Oropharyngeal squamous cell carcinoma
     Dosage: 94 MG, UNK
     Route: 041
     Dates: start: 20210616, end: 20210616
  3. MORPHINE SULFATE [Concomitant]
     Active Substance: MORPHINE SULFATE
     Indication: Pain
     Dosage: UNK
  4. POLARAMINE [Concomitant]
     Active Substance: DEXCHLORPHENIRAMINE MALEATE
     Indication: Product used for unknown indication
     Dosage: 5 MG, UNK
     Route: 042
     Dates: start: 20210616, end: 20210616
  5. LYRICA [Concomitant]
     Active Substance: PREGABALIN
     Indication: Pain
     Dosage: UNK
  6. TACROLIMUS [Concomitant]
     Active Substance: TACROLIMUS
     Indication: Organ transplant
     Dosage: UNK
  7. SKENAN [Concomitant]
     Active Substance: MORPHINE SULFATE
     Indication: Pain
     Dosage: UNK
  8. MAGNESIUM SULFATE [Concomitant]
     Active Substance: MAGNESIUM SULFATE
     Indication: Product used for unknown indication
     Dosage: 4 DOSAGE FORM, UNK
     Route: 042
     Dates: start: 20210616, end: 20210616
  9. SOLU-MEDROL [Concomitant]
     Active Substance: METHYLPREDNISOLONE SODIUM SUCCINATE
     Indication: Product used for unknown indication
     Dosage: 60 MG, UNK
     Route: 042
     Dates: start: 20210616, end: 20210616
  10. SODIUM CHLORIDE [Concomitant]
     Active Substance: SODIUM CHLORIDE
     Indication: Product used for unknown indication
     Dosage: 500 ML, UNK
     Route: 042
     Dates: start: 20210616, end: 20210616

REACTIONS (2)
  - Pulmonary oedema [Recovered/Resolved]
  - Dyspnoea [Recovered/Resolved]

NARRATIVE: CASE EVENT DATE: 20210616
